FAERS Safety Report 6641657-4 (Version None)
Quarter: 2010Q1

REPORT INFORMATION
  Report Type: 
  Country: None (occurrence: None)
  Receive Date: 20100316
  Receipt Date: 20100311
  Transmission Date: 20100710
  Serious: Yes (Death)
  Sender: FDA-Public Use
  Company Number: AE-310-078

PATIENT
  Sex: Male

DRUGS (5)
  1. LINDODERM PATCH  5 % [Suspect]
     Route: 062
  2. NEURONTIN [Suspect]
  3. TRAMADOL HCL [Suspect]
  4. OXYCODONE [Suspect]
  5. FENTANYL TRANSDERMAL SYSTEM, 75 MCG/HR [Suspect]

REACTIONS (7)
  - CARDIAC DISORDER [None]
  - FLUID RETENTION [None]
  - MULTI-ORGAN FAILURE [None]
  - MULTIPLE DRUG OVERDOSE [None]
  - RESPIRATORY ARREST [None]
  - SOMNOLENCE [None]
  - VOMITING [None]
